FAERS Safety Report 5775728-1 (Version None)
Quarter: 2008Q2

REPORT INFORMATION
  Report Type: 
  Country: None (occurrence: None)
  Receive Date: 20080601
  Receipt Date: 20080319
  Transmission Date: 20081010
  Serious: No
  Sender: FDA-Public Use
  Company Number: US200803004828

PATIENT
  Age: 65 Year
  Sex: Female
  Weight: 82.1 kg

DRUGS (3)
  1. BYETTA [Suspect]
     Indication: INSULIN-REQUIRING TYPE 2 DIABETES MELLITUS
     Dosage: 5 UG, 2/D, SUBCUTANEOUS
     Route: 058
     Dates: start: 20070101
  2. NOVOLIN (INSULIN HUMAN, INSULIN HUMAN INJECTION, ISOPHANE) [Concomitant]
  3. NOVOLIN R [Concomitant]

REACTIONS (3)
  - BLOOD GLUCOSE DECREASED [None]
  - FEELING ABNORMAL [None]
  - HYPERHIDROSIS [None]
